FAERS Safety Report 17065602 (Version 3)
Quarter: 2020Q3

REPORT INFORMATION
  Report Type: Other
  Country: GB (occurrence: GB)
  Receive Date: 20191122
  Receipt Date: 20200828
  Transmission Date: 20201102
  Serious: Yes (Hospitalization)
  Sender: FDA-Public Use
  Company Number: GB-ROCHE-2469302

PATIENT
  Age: 62 Year
  Sex: Female

DRUGS (69)
  1. LETROZOLE. [Suspect]
     Active Substance: LETROZOLE
     Indication: BREAST CANCER
     Route: 048
     Dates: start: 20180525, end: 20181011
  2. PENTASA [Concomitant]
     Active Substance: MESALAMINE
     Dates: start: 20131217, end: 20180730
  3. OMEPRAZOLE. [Concomitant]
     Active Substance: OMEPRAZOLE
     Dates: start: 20091014
  4. AMLODIPINE [Concomitant]
     Active Substance: AMLODIPINE BESYLATE
     Route: 048
     Dates: end: 20180301
  5. QUININE SULPHATE [Concomitant]
     Active Substance: QUININE SULFATE
     Route: 048
     Dates: start: 20040219, end: 20180225
  6. DUODERM (UNITED KINGDOM) [Concomitant]
  7. TRASTUZUMAB EMTANSINE [Suspect]
     Active Substance: ADO-TRASTUZUMAB EMTANSINE
     Indication: BREAST CANCER
     Route: 042
     Dates: start: 20191019
  8. ZEROBASE [Concomitant]
     Active Substance: MINERAL OIL\PARAFFIN
     Indication: DRY SKIN
     Dosage: PRN (AS?NEEDED)
  9. VANCOMYCIN [Concomitant]
     Active Substance: VANCOMYCIN
  10. GENTAMYCIN [Concomitant]
     Active Substance: GENTAMICIN
  11. METRONIDAZOLE. [Concomitant]
     Active Substance: METRONIDAZOLE
  12. COLECALCIFEROL [Concomitant]
     Active Substance: CHOLECALCIFEROL
     Route: 048
     Dates: start: 20180926
  13. TRASTUZUMAB. [Suspect]
     Active Substance: TRASTUZUMAB
     Indication: BREAST CANCER
  14. LETROZOLE. [Suspect]
     Active Substance: LETROZOLE
     Indication: BREAST CANCER METASTATIC
     Route: 048
     Dates: start: 20180119, end: 20180126
  15. PIRITON [Concomitant]
     Active Substance: CHLORPHENIRAMINE MALEATE
     Dosage: PRN (AS?NEEDED)
     Route: 048
     Dates: start: 20180125
  16. SORBADERM BARRIER CREAM [Concomitant]
     Dosage: PRN (AS?NEEDED)
     Route: 061
     Dates: start: 20181109
  17. TEICOPLANIN [Concomitant]
     Active Substance: TEICOPLANIN
  18. SILVER NITRATE. [Concomitant]
     Active Substance: SILVER NITRATE
  19. HEPARIN SODIUM. [Concomitant]
     Active Substance: HEPARIN SODIUM
  20. NACL [Concomitant]
     Active Substance: SODIUM CHLORIDE
  21. BENDROFLUMETHIAZIDE [Concomitant]
     Active Substance: BENDROFLUMETHIAZIDE
     Route: 048
     Dates: start: 20030114
  22. CHLORPHENAMINE [Concomitant]
     Active Substance: CHLORPHENIRAMINE MALEATE
     Route: 042
     Dates: start: 20180202, end: 20180518
  23. BENZYDAMINE [Concomitant]
     Active Substance: BENZYDAMINE
     Dates: start: 20180414
  24. TRIMETHOPRIM. [Concomitant]
     Active Substance: TRIMETHOPRIM
  25. OXYGEN. [Concomitant]
     Active Substance: OXYGEN
  26. DOUBLEBASE [Concomitant]
     Active Substance: ISOPROPYL MYRISTATE\PARAFFIN
  27. TRASTUZUMAB EMTANSINE [Suspect]
     Active Substance: ADO-TRASTUZUMAB EMTANSINE
     Indication: BREAST CANCER METASTATIC
  28. COCODAMOL [Concomitant]
     Active Substance: ACETAMINOPHEN\CODEINE PHOSPHATE
     Dosage: PRN (AS?NEEDED)
     Route: 048
     Dates: start: 20180302
  29. FOLIC ACID. [Concomitant]
     Active Substance: FOLIC ACID
     Dates: start: 20030207
  30. DEXAMETHASONE. [Concomitant]
     Active Substance: DEXAMETHASONE
     Route: 042
     Dates: start: 20180202, end: 20180518
  31. METOCLOPRAMIDE. [Concomitant]
     Active Substance: METOCLOPRAMIDE
     Dosage: PRN (AS?NEEDED)
     Route: 048
     Dates: start: 20180202, end: 20180518
  32. CLEXANE [Concomitant]
     Active Substance: ENOXAPARIN SODIUM
  33. FERROUS FUMARATE [Concomitant]
     Active Substance: FERROUS FUMARATE
  34. TRANEXAMIC ACID. [Concomitant]
     Active Substance: TRANEXAMIC ACID
  35. SUGAMMADEX [Concomitant]
     Active Substance: SUGAMMADEX
  36. TRASTUZUMAB. [Suspect]
     Active Substance: TRASTUZUMAB
     Indication: BREAST CANCER METASTATIC
     Route: 058
     Dates: start: 20180202, end: 20180827
  37. PACLITAXEL. [Suspect]
     Active Substance: PACLITAXEL
     Indication: BREAST CANCER
     Route: 042
     Dates: start: 20180202, end: 20180518
  38. TERBUTALINE [Concomitant]
     Active Substance: TERBUTALINE
     Dates: start: 20030108
  39. CLOTRIMAZOLE. [Concomitant]
     Active Substance: CLOTRIMAZOLE
     Route: 061
  40. ONDANSETRON [Concomitant]
     Active Substance: ONDANSETRON
  41. CLARITHROMYCIN. [Concomitant]
     Active Substance: CLARITHROMYCIN
  42. ZOLEDRONIC ACID [Concomitant]
     Active Substance: ZOLEDRONIC ACID
     Dates: start: 20181019
  43. CYCLIZINE [Concomitant]
     Active Substance: CYCLIZINE
  44. AQUACEL [Concomitant]
     Active Substance: CARBOXYMETHYLCELLULOSE SODIUM
  45. PACLITAXEL. [Suspect]
     Active Substance: PACLITAXEL
     Indication: BREAST CANCER METASTATIC
  46. EXEMESTANE. [Suspect]
     Active Substance: EXEMESTANE
     Indication: BREAST CANCER METASTATIC
     Route: 048
     Dates: start: 20200228
  47. ADCAL?D3 [Concomitant]
     Active Substance: CALCIUM CARBONATE\CHOLECALCIFEROL
     Route: 048
     Dates: start: 20140127
  48. DOXAZOSIN [Concomitant]
     Active Substance: DOXAZOSIN MESYLATE
     Route: 048
     Dates: start: 20040816
  49. RANITIDINE. [Concomitant]
     Active Substance: RANITIDINE
     Route: 042
     Dates: start: 20180202, end: 20180518
  50. HYDROXOCOBALAMIN [Concomitant]
     Active Substance: HYDROXOCOBALAMIN
     Dosage: HYDROXOCOBALAMIN?1MG/1ML
     Route: 042
     Dates: start: 20020115
  51. OXYCODONE [Concomitant]
     Active Substance: OXYCODONE
     Dates: start: 20180916, end: 20181002
  52. DOUBLEBASE [Concomitant]
     Active Substance: ISOPROPYL MYRISTATE\PARAFFIN
  53. DERMOL [Concomitant]
     Active Substance: BENZALKONIUM CHLORIDE\CHLORHEXIDINE HYDROCHLORIDE\ISOPROPYL MYRISTATE\PARAFFIN
  54. ONDANSETRON [Concomitant]
     Active Substance: ONDANSETRON
     Indication: BONE PAIN
     Dates: start: 20181216
  55. MAGNESIUM ASPARTATE [Concomitant]
     Active Substance: MAGNESIUM ASPARTATE
  56. SANDO K [Concomitant]
  57. RANITIDINE. [Concomitant]
     Active Substance: RANITIDINE
  58. ENOXAPARIN [Concomitant]
     Active Substance: ENOXAPARIN
  59. PARACETAMOL [Concomitant]
     Active Substance: ACETAMINOPHEN
  60. EUMOVATE [Concomitant]
     Active Substance: CLOBETASONE BUTYRATE
  61. DOXYCYCLINE. [Concomitant]
     Active Substance: DOXYCYCLINE
  62. CHIROCAINE [Concomitant]
     Active Substance: LEVOBUPIVACAINE HYDROCHLORIDE
  63. PLASMA?LYTE 148 [Concomitant]
     Active Substance: MAGNESIUM CHLORIDE\POTASSIUM CHLORIDE\SODIUM ACETATE\SODIUM CHLORIDE\SODIUM GLUCONATE
  64. PROPOFOL. [Concomitant]
     Active Substance: PROPOFOL
  65. GLUCOSE [Concomitant]
     Active Substance: DEXTROSE
  66. FLUCONAZOLE. [Concomitant]
     Active Substance: FLUCONAZOLE
     Route: 048
     Dates: start: 20180125, end: 20180128
  67. FEXOFENADINE [Concomitant]
     Active Substance: FEXOFENADINE HYDROCHLORIDE
  68. SORBADERM BARRIER CREAM [Concomitant]
  69. MORPHINE [Concomitant]
     Active Substance: MORPHINE

REACTIONS (6)
  - Stoma site hypergranulation [Recovered/Resolved]
  - Stoma site haemorrhage [Recovered/Resolved]
  - Stoma site haemorrhage [Recovered/Resolved]
  - Infection [Not Recovered/Not Resolved]
  - Pruritus [Not Recovered/Not Resolved]
  - Skin abrasion [Not Recovered/Not Resolved]

NARRATIVE: CASE EVENT DATE: 20180323
